FAERS Safety Report 7769234-2 (Version None)
Quarter: 2011Q3

REPORT INFORMATION
  Report Type: 
  Country: None (occurrence: None)
  Receive Date: 20110922
  Receipt Date: 20110912
  Transmission Date: 20111222
  Serious: Yes (Hospitalization, Disabling)
  Sender: FDA-Public Use
  Company Number: CZ-MILLENNIUM PHARMACEUTICALS, INC.-2011-01589

PATIENT

DRUGS (16)
  1. VELCADE [Suspect]
     Indication: MULTIPLE MYELOMA
     Dosage: 2.2 MG, CYCLIC
     Route: 042
     Dates: start: 20110307, end: 20110314
  2. DICLOFENAC SODIUM [Concomitant]
     Dosage: UNK
     Dates: end: 20110317
  3. HELICID                            /00661201/ [Concomitant]
     Indication: PROPHYLAXIS
     Dosage: UNK
     Dates: start: 20110307
  4. BONDRONAT                          /01304701/ [Concomitant]
     Indication: MULTIPLE MYELOMA
     Dosage: UNK
  5. CALCIUM CARBONATE [Concomitant]
  6. VELCADE [Suspect]
     Dosage: 1 MG/M2, UNK
     Dates: start: 20110411
  7. RIBOMUSTIN [Suspect]
     Dosage: 56 UNK, UNK
     Dates: start: 20110411
  8. ZOVIRAX                            /00587301/ [Concomitant]
     Indication: PROPHYLAXIS
     Dosage: UNK
     Dates: start: 20110307
  9. DURAGESIC-100 [Concomitant]
     Dosage: UNK
  10. DEXAMETHASONE [Suspect]
     Indication: MULTIPLE MYELOMA
     Dosage: 20 MG, CYCLIC
     Route: 048
     Dates: start: 20110307, end: 20110314
  11. SUMETROLIM [Concomitant]
     Indication: PROPHYLAXIS
     Dosage: UNK
     Dates: start: 20110307
  12. NEURONTIN [Concomitant]
     Dosage: UNK
  13. ZOFRAN [Concomitant]
     Indication: PROPHYLAXIS
     Dosage: UNK
     Dates: start: 20110307
  14. EPREX [Concomitant]
     Indication: ANAEMIA
     Dosage: UNK
     Dates: start: 20110307, end: 20110404
  15. RIBOMUSTIN [Suspect]
     Indication: MULTIPLE MYELOMA
     Dosage: 119 MG, CYCLIC
     Route: 042
     Dates: start: 20110307, end: 20110310
  16. BLOOD TRANSFUSION, AUXILIARY PRODUCTS [Concomitant]
     Dosage: UNK
     Dates: start: 20110314, end: 20110314

REACTIONS (2)
  - RETINAL HAEMORRHAGE [None]
  - SPINAL COLUMN STENOSIS [None]
